FAERS Safety Report 7088979-3 (Version None)
Quarter: 2010Q4

REPORT INFORMATION
  Report Type: 
  Country: None (occurrence: None)
  Receive Date: 20101029
  Receipt Date: 20101021
  Transmission Date: 20110411
  Serious: Yes (Hospitalization)
  Sender: FDA-Public Use
  Company Number: 2010MA003871

PATIENT
  Age: 34 Year
  Sex: Male

DRUGS (5)
  1. FEVERALL [Suspect]
     Dates: start: 20101002
  2. VALPROIC ACID [Suspect]
     Dates: start: 20101002
  3. CLOZARIL [Suspect]
     Indication: SCHIZOPHRENIA
     Dosage: PO
     Route: 048
     Dates: start: 20011012
  4. CLOZARIL [Suspect]
     Dates: start: 20101002
  5. ALCOHOL (ETHANOL) [Suspect]

REACTIONS (1)
  - MULTIPLE DRUG OVERDOSE [None]
